FAERS Safety Report 19232122 (Version 2)
Quarter: 2021Q2

REPORT INFORMATION
  Report Type: Spontaneous
  Country: AR (occurrence: AR)
  Receive Date: 20210507
  Receipt Date: 20210512
  Transmission Date: 20210717
  Serious: Yes (Hospitalization)
  Sender: FDA-Public Use
  Company Number: AR-ROCHE-2822996

PATIENT
  Sex: Male

DRUGS (6)
  1. TECENTRIQ [Suspect]
     Active Substance: ATEZOLIZUMAB
     Indication: SMALL CELL LUNG CANCER
     Dosage: ON 06/JUL/2020, HE RECEIVED LAST DOSE OF ATEZOLIZUMAB PRIOR TO ONSET OF SERIOUS ADVERSE EVENT.
     Route: 041
     Dates: start: 20200226, end: 20200706
  2. LEVOTHYROXINE. [Concomitant]
     Active Substance: LEVOTHYROXINE
     Dates: start: 202103
  3. PAROXETINE. [Concomitant]
     Active Substance: PAROXETINE
  4. QUETIAPINE. [Concomitant]
     Active Substance: QUETIAPINE
  5. ETOPOSIDE. [Concomitant]
     Active Substance: ETOPOSIDE
     Indication: SMALL CELL LUNG CANCER
     Dates: start: 20200226, end: 20200706
  6. CARBOPLATIN. [Concomitant]
     Active Substance: CARBOPLATIN
     Indication: SMALL CELL LUNG CANCER
     Dates: start: 20200226, end: 20200706

REACTIONS (2)
  - Ileus paralytic [Recovering/Resolving]
  - Constipation [Recovering/Resolving]
